FAERS Safety Report 15377904 (Version 2)
Quarter: 2018Q3

REPORT INFORMATION
  Report Type: Spontaneous
  Country: IN (occurrence: IN)
  Receive Date: 20180913
  Receipt Date: 20180913
  Transmission Date: 20181010
  Serious: Yes (Death, Other)
  Sender: FDA-Public Use
  Company Number: PHHY2018IN089224

PATIENT
  Age: 49 Year
  Sex: Male

DRUGS (2)
  1. CICLOSPORIN [Suspect]
     Active Substance: CYCLOSPORINE
     Indication: STEM CELL TRANSPLANT
     Route: 065
  2. METHYLPREDNISOLONE. [Suspect]
     Active Substance: METHYLPREDNISOLONE
     Indication: GRAFT VERSUS HOST DISEASE IN GASTROINTESTINAL TRACT
     Dosage: 2 MG/KG, UNK
     Route: 065

REACTIONS (8)
  - Graft versus host disease in gastrointestinal tract [Unknown]
  - Thrombotic microangiopathy [Recovering/Resolving]
  - Diarrhoea [Unknown]
  - Acute kidney injury [Unknown]
  - Diarrhoea haemorrhagic [Unknown]
  - Ascites [Recovering/Resolving]
  - Klebsiella sepsis [Fatal]
  - Depressed level of consciousness [Unknown]
